FAERS Safety Report 16690704 (Version 5)
Quarter: 2020Q3

REPORT INFORMATION
  Report Type: Report from Study
  Country: CA (occurrence: CA)
  Receive Date: 20190811
  Receipt Date: 20200807
  Transmission Date: 20201102
  Serious: Yes (Other)
  Sender: FDA-Public Use
  Company Number: PHHY2018CA062975

PATIENT
  Age: 76 Year
  Sex: Female

DRUGS (14)
  1. COSENTYX [Suspect]
     Active Substance: SECUKINUMAB
     Dosage: 150 MG, QMO
     Route: 058
     Dates: start: 20181010
  2. COSENTYX [Suspect]
     Active Substance: SECUKINUMAB
     Dosage: 300 MG, Q2W
     Route: 058
  3. ACETAMINOPHEN. [Concomitant]
     Active Substance: ACETAMINOPHEN
     Indication: PRODUCT USED FOR UNKNOWN INDICATION
     Dosage: UNK UNK, PRN
     Route: 065
  4. NAPROXEN. [Concomitant]
     Active Substance: NAPROXEN
     Indication: PRODUCT USED FOR UNKNOWN INDICATION
     Dosage: UNK UNK, PRN
     Route: 065
  5. BRENZYS [Concomitant]
     Active Substance: ETANERCEPT
     Indication: PRODUCT USED FOR UNKNOWN INDICATION
     Dosage: UNK
     Route: 065
  6. METHOTREXATE. [Concomitant]
     Active Substance: METHOTREXATE
     Indication: PRODUCT USED FOR UNKNOWN INDICATION
     Dosage: UNK
     Route: 065
  7. CORTISONE [Concomitant]
     Active Substance: CORTISONE
     Indication: PRODUCT USED FOR UNKNOWN INDICATION
     Dosage: UNK UNK, PRN
     Route: 065
  8. XARELTO [Concomitant]
     Active Substance: RIVAROXABAN
     Indication: PRODUCT USED FOR UNKNOWN INDICATION
     Dosage: UNK
     Route: 065
  9. COSENTYX [Suspect]
     Active Substance: SECUKINUMAB
     Indication: ANKYLOSING SPONDYLITIS
     Dosage: 300 MG, Q4W
     Route: 058
     Dates: start: 20180518
  10. LYRICA [Suspect]
     Active Substance: PREGABALIN
     Indication: PRODUCT USED FOR UNKNOWN INDICATION
     Dosage: UNK
     Route: 065
  11. CYMBALTA [Suspect]
     Active Substance: DULOXETINE HYDROCHLORIDE
     Indication: PAIN
     Dosage: 60 MG, BID
     Route: 065
  12. HUMIRA [Concomitant]
     Active Substance: ADALIMUMAB
     Indication: PRODUCT USED FOR UNKNOWN INDICATION
     Dosage: UNK
     Route: 065
  13. COSENTYX [Suspect]
     Active Substance: SECUKINUMAB
     Dosage: 150 MG, QMO
     Route: 058
  14. DILTIAZEM. [Suspect]
     Active Substance: DILTIAZEM
     Indication: PRODUCT USED FOR UNKNOWN INDICATION
     Dosage: UNK
     Route: 065

REACTIONS (45)
  - Back pain [Unknown]
  - Arthritis [Unknown]
  - Pain in extremity [Unknown]
  - Tendon pain [Unknown]
  - Orthopnoea [Unknown]
  - Dysuria [Unknown]
  - Neck pain [Unknown]
  - Intervertebral disc degeneration [Unknown]
  - Pain [Unknown]
  - Hyperhidrosis [Unknown]
  - Intervertebral disc space narrowing [Unknown]
  - Chest pain [Unknown]
  - Arthropathy [Unknown]
  - Chondrocalcinosis [Unknown]
  - Cystitis [Recovering/Resolving]
  - Gait inability [Unknown]
  - Musculoskeletal stiffness [Unknown]
  - Aortic arteriosclerosis [Unknown]
  - Trigger finger [Recovering/Resolving]
  - Cyst [Unknown]
  - Dizziness [Unknown]
  - Dry skin [Unknown]
  - Vitamin D decreased [Unknown]
  - Fibromyalgia [Unknown]
  - Burning sensation [Unknown]
  - Dyspnoea exertional [Unknown]
  - Insomnia [Unknown]
  - Osteoarthritis [Unknown]
  - Osteoporosis [Unknown]
  - Spondyloarthropathy [Unknown]
  - Fatigue [Unknown]
  - Restlessness [Unknown]
  - Peripheral swelling [Unknown]
  - Hypoaesthesia [Unknown]
  - Seizure [Unknown]
  - Abdominal distension [Unknown]
  - Vision blurred [Unknown]
  - Fall [Unknown]
  - Eye pain [Unknown]
  - Hepatomegaly [Unknown]
  - Tremor [Unknown]
  - Faeces discoloured [Unknown]
  - Tendonitis [Unknown]
  - Rib fracture [Unknown]
  - Drug ineffective [Unknown]

NARRATIVE: CASE EVENT DATE: 201809
